FAERS Safety Report 6670744-X (Version None)
Quarter: 2010Q2

REPORT INFORMATION
  Report Type: 
  Country: None (occurrence: None)
  Receive Date: 20100407
  Receipt Date: 20100326
  Transmission Date: 20101027
  Serious: Yes (Hospitalization, Other)
  Sender: FDA-Public Use
  Company Number: PHEH2010US01826

PATIENT
  Sex: Female

DRUGS (13)
  1. NEORAL [Suspect]
     Indication: RENAL TRANSPLANT
     Dosage: 125 MG, BID
     Route: 048
     Dates: start: 20090619
  2. ASPIRIN [Concomitant]
     Dosage: 325 MG, QD
     Dates: start: 20040901
  3. ZOCOR [Concomitant]
     Dosage: 20 MG, QHS
     Dates: start: 20090205
  4. TICLID [Concomitant]
     Dosage: 250 MG, BID
     Dates: start: 20090205
  5. GUANFACINE HYDROCHLORIDE [Concomitant]
     Dosage: 1 MG, QHS
     Dates: start: 20090205
  6. CALTRATE 600 + VITAMIN D [Concomitant]
     Dosage: 1 TWO TIMES A DAY
     Dates: start: 20090219
  7. CENTRUM SILVER [Concomitant]
     Dosage: 1 QD
     Route: 048
     Dates: start: 20090603
  8. FUROSEMIDE [Concomitant]
     Dosage: 20 MG, QD
     Dates: start: 20090619
  9. LISINOPRIL [Concomitant]
     Dosage: 20 MG, QHS
     Dates: start: 20091113
  10. AZATHIOPRINE [Concomitant]
     Dosage: 100 MG, QHS
     Dates: start: 20091113
  11. CIPRO [Concomitant]
     Dosage: 500 MG, BID
     Dates: start: 20091117
  12. SERTRALINE HYDROCHLORIDE [Concomitant]
     Dosage: 50 MG, BID
     Dates: start: 20091201
  13. NORVASC [Concomitant]
     Dosage: 2.5 MG, BID
     Dates: start: 20091201

REACTIONS (9)
  - BLOOD OSMOLARITY DECREASED [None]
  - CYSTITIS [None]
  - HYPOKALAEMIA [None]
  - HYPONATRAEMIA [None]
  - MALNUTRITION [None]
  - ORAL DISORDER [None]
  - OSTEOARTHRITIS [None]
  - PROTEINURIA [None]
  - WHITE BLOOD CELL DISORDER [None]
